FAERS Safety Report 15206816 (Version 2)
Quarter: 2018Q4

REPORT INFORMATION
  Report Type: Report from Study
  Country: IT (occurrence: IT)
  Receive Date: 20180727
  Receipt Date: 20180928
  Transmission Date: 20190204
  Serious: Yes (Other)
  Sender: FDA-Public Use
  Company Number: IT-TEVA-2018-IT-931094

PATIENT
  Age: 72 Year
  Sex: Female

DRUGS (2)
  1. ATORVASTATIN [Suspect]
     Active Substance: ATORVASTATIN
     Indication: HYPERCHOLESTEROLAEMIA
     Route: 048
  2. EFIENT 5 MG FILM-COATED TABLETS [Suspect]
     Active Substance: PRASUGREL HYDROCHLORIDE
     Indication: PROPHYLAXIS
     Route: 048

REACTIONS (4)
  - Trunk injury [Unknown]
  - Skin reaction [Unknown]
  - Dermatitis bullous [Unknown]
  - Pruritus [Unknown]

NARRATIVE: CASE EVENT DATE: 20180620
